FAERS Safety Report 4293826-9 (Version None)
Quarter: 2004Q1

REPORT INFORMATION
  Report Type: 
  Country: None (occurrence: None)
  Receive Date: 20040211
  Receipt Date: 20040211
  Transmission Date: 20041129
  Serious: Yes (Life-Threatening, Hospitalization, Disabling)
  Sender: FDA-Public Use
  Company Number: None

PATIENT
  Sex: Female
  Weight: 99.7913 kg

DRUGS (1)
  1. AVANDIA [Suspect]
     Indication: DIABETES MELLITUS
     Dosage: 1 A DAY

REACTIONS (5)
  - CONDITION AGGRAVATED [None]
  - DIABETES MELLITUS [None]
  - DYSPNOEA [None]
  - OEDEMA PERIPHERAL [None]
  - SWELLING [None]
